FAERS Safety Report 23858734 (Version 1)
Quarter: 2024Q2

REPORT INFORMATION
  Report Type: Spontaneous
  Country: US (occurrence: US)
  Receive Date: 20240515
  Receipt Date: 20240515
  Transmission Date: 20240715
  Serious: No
  Sender: FDA-Public Use
  Company Number: US-BAYER-2024A070278

PATIENT
  Sex: Male

DRUGS (1)
  1. MIRALAX [Suspect]
     Active Substance: POLYETHYLENE GLYCOL 3350
     Indication: Product used for unknown indication
     Dosage: MIXED UP THE BOTTLE WITH WATER
     Route: 048
     Dates: start: 20240510

REACTIONS (2)
  - Extra dose administered [Unknown]
  - Product label issue [Unknown]

NARRATIVE: CASE EVENT DATE: 20240510
